FAERS Safety Report 9199761 (Version 1)
Quarter: 2013Q1

REPORT INFORMATION
  Report Type: Spontaneous
  Country: US (occurrence: None)
  Receive Date: 20130328
  Receipt Date: 20130328
  Transmission Date: 20140127
  Serious: Yes (Other)
  Sender: FDA-Public Use
  Company Number: None

PATIENT
  Sex: Male
  Weight: 98.43 kg

DRUGS (1)
  1. VENLAFAXINE ER [Suspect]
     Indication: ANXIETY
     Dosage: 75 MG 3 PO QD ORAL
     Route: 048
     Dates: start: 20080707

REACTIONS (5)
  - Headache [None]
  - Dizziness [None]
  - Diarrhoea [None]
  - Drug intolerance [None]
  - Product substitution issue [None]
